FAERS Safety Report 5934076-7 (Version None)
Quarter: 2008Q4

REPORT INFORMATION
  Report Type: 
  Country: None (occurrence: None)
  Receive Date: 20081029
  Receipt Date: 20081028
  Transmission Date: 20090506
  Serious: Yes (Hospitalization)
  Sender: FDA-Public Use
  Company Number: NZ-MERCK-0810NZL00009

PATIENT
  Sex: Male

DRUGS (6)
  1. ZOCOR [Suspect]
     Indication: BLOOD CHOLESTEROL INCREASED
     Route: 048
     Dates: start: 20080801, end: 20080901
  2. ZOCOR [Suspect]
     Route: 048
     Dates: start: 20080901, end: 20081001
  3. ATENOLOL [Concomitant]
     Indication: HYPERTENSION
     Route: 065
  4. PAROXETINE HCL [Suspect]
     Route: 065
     Dates: start: 20080101, end: 20080101
  5. CITALOPRAM [Suspect]
     Route: 065
     Dates: start: 20080901, end: 20080901
  6. LORAZEPAM [Concomitant]
     Indication: SLEEP DISORDER
     Route: 065
     Dates: start: 20080929

REACTIONS (5)
  - CHEST PAIN [None]
  - CONVULSION [None]
  - GASTROOESOPHAGEAL REFLUX DISEASE [None]
  - INSOMNIA [None]
  - MYALGIA [None]
